FAERS Safety Report 26212471 (Version 1)
Quarter: 2025Q4

REPORT INFORMATION
  Report Type: Spontaneous
  Country: US (occurrence: US)
  Receive Date: 20251230
  Receipt Date: 20251230
  Transmission Date: 20260118
  Serious: Yes (Hospitalization, Other)
  Sender: SANOFI AVENTIS
  Company Number: US-SA-2025SA385879

PATIENT
  Age: 22 Year
  Sex: Male

DRUGS (1)
  1. ALTUVIIIO [Suspect]
     Active Substance: EFANESOCTOCOG ALFA
     Indication: Factor VIII deficiency
     Dosage: 2975 IU, QW
     Route: 042
     Dates: start: 202407

REACTIONS (2)
  - Haemobilia [Recovered/Resolved]
  - Gallbladder disorder [Unknown]

NARRATIVE: CASE EVENT DATE: 20251123
